FAERS Safety Report 9780955 (Version 1)
Quarter: 2013Q4

REPORT INFORMATION
  Report Type: Spontaneous
  Country: IT (occurrence: None)
  Receive Date: 20131220
  Receipt Date: 20131220
  Transmission Date: 20140711
  Serious: Yes (Death, Hospitalization, Other)
  Sender: FDA-Public Use
  Company Number: AUR-APL-2013-10577

PATIENT
  Age: 53 Year
  Sex: Male

DRUGS (1)
  1. METFORMIN [Suspect]
     Indication: DIABETES MELLITUS
     Dosage: 850 MG, 3 IN 1 D
     Route: 048

REACTIONS (5)
  - Lactic acidosis [None]
  - Renal failure acute [None]
  - Loss of consciousness [None]
  - Anaemia [None]
  - Dialysis [None]
